FAERS Safety Report 17369461 (Version 8)
Quarter: 2020Q3

REPORT INFORMATION
  Report Type: Report from Study
  Country: None (occurrence: NL)
  Receive Date: 20200204
  Receipt Date: 20200929
  Transmission Date: 20201102
  Serious: Yes (Hospitalization, Other)
  Sender: FDA-Public Use
  Company Number: NL-ABBVIE-20K-114-3262683-00

PATIENT
  Age: 58 Year
  Sex: Male

DRUGS (9)
  1. ATORVASTATIN [Concomitant]
     Active Substance: ATORVASTATIN
     Indication: BLOOD CHOLESTEROL ABNORMAL
  2. DUODOPA [Suspect]
     Active Substance: CARBIDOPA\LEVODOPA
     Indication: ILL-DEFINED DISORDER
     Dosage: MD: 4,3
     Route: 050
     Dates: start: 20170731
  3. DUODOPA [Suspect]
     Active Substance: CARBIDOPA\LEVODOPA
     Dosage: MD 4.4 CD 4.4 ED 2.8
     Route: 050
     Dates: start: 202003
  4. DUODOPA [Suspect]
     Active Substance: CARBIDOPA\LEVODOPA
     Dosage: CONTINUOUS DOSE WAS DECREASED BY 0.2 ML/H,INCREASED THE CONTINUOUSE DOSE BY 0.1 ML/H.
     Route: 050
  5. EZETROL [Concomitant]
     Active Substance: EZETIMIBE
     Indication: BLOOD CHOLESTEROL ABNORMAL
  6. PREGABALINE [Concomitant]
     Active Substance: PREGABALIN
     Indication: PRODUCT USED FOR UNKNOWN INDICATION
  7. MACROGOL [Concomitant]
     Active Substance: POLYETHYLENE GLYCOLS
     Indication: ABNORMAL FAECES
  8. DUODOPA [Suspect]
     Active Substance: CARBIDOPA\LEVODOPA
     Dosage: MD: 4.4 ML CD: 4.5 ML/H ED: 2.8 ML/H, REMAINS AT 16 HOURS
     Route: 050
     Dates: start: 20170731
  9. MADOPAR DISPERSIBLE [Concomitant]
     Indication: PRODUCT USED FOR UNKNOWN INDICATION

REACTIONS (28)
  - Pain in extremity [Recovered/Resolved]
  - Weight increased [Recovered/Resolved]
  - Hernia [Not Recovered/Not Resolved]
  - On and off phenomenon [Not Recovered/Not Resolved]
  - Dyskinesia [Not Recovered/Not Resolved]
  - Bradykinesia [Not Recovered/Not Resolved]
  - Muscle rigidity [Not Recovered/Not Resolved]
  - Respiratory disorder [Not Recovered/Not Resolved]
  - Carpal tunnel syndrome [Not Recovered/Not Resolved]
  - Pain in extremity [Recovered/Resolved]
  - Hospitalisation [Not Recovered/Not Resolved]
  - Hyperventilation [Unknown]
  - Muscle spasms [Not Recovered/Not Resolved]
  - Parkinson^s disease [Not Recovered/Not Resolved]
  - Panic attack [Recovering/Resolving]
  - Gait disturbance [Not Recovered/Not Resolved]
  - Stoma site erythema [Recovered/Resolved]
  - Drug ineffective [Not Recovered/Not Resolved]
  - Stoma site irritation [Recovered/Resolved]
  - Dyskinesia [Recovered/Resolved]
  - Weight decreased [Not Recovered/Not Resolved]
  - Dystonia [Unknown]
  - Neuropathy peripheral [Unknown]
  - Anxiety [Not Recovered/Not Resolved]
  - Hyperkinesia [Not Recovered/Not Resolved]
  - Musculoskeletal stiffness [Not Recovered/Not Resolved]
  - Dyspnoea [Not Recovered/Not Resolved]
  - Stoma site discharge [Unknown]

NARRATIVE: CASE EVENT DATE: 202001
